FAERS Safety Report 9889784 (Version 1)
Quarter: 2014Q1

REPORT INFORMATION
  Report Type: Spontaneous
  Country: US (occurrence: US)
  Receive Date: 20140212
  Receipt Date: 20140212
  Transmission Date: 20141002
  Serious: Yes (Other)
  Sender: FDA-Public Use
  Company Number: US-ROCHE-1347016

PATIENT
  Age: 62 Year
  Sex: Male

DRUGS (11)
  1. RITUXAN [Suspect]
     Indication: B-CELL LYMPHOMA
     Dosage: 6 ROUNDS OF RCHOP
     Route: 041
     Dates: start: 200707
  2. RITUXAN [Suspect]
     Dosage: 6 ROUNDS OF RITUXAN AND TRIANDA
     Route: 041
     Dates: start: 201105
  3. RITUXAN [Suspect]
     Dosage: MAINTENANCE PROTOCOL- HAD 8 ROUNDS
     Route: 041
     Dates: start: 201201, end: 201303
  4. NEULASTA [Concomitant]
     Indication: NEUTROPENIA
     Dosage: ONE INJECTION EVERY OTHER MONTH
     Route: 058
  5. ASPIRIN [Concomitant]
     Route: 065
  6. TRIAMTERENE [Concomitant]
     Indication: BLOOD PRESSURE
     Route: 065
  7. CYCLOPHOSPHAMIDE [Concomitant]
  8. DOXORUBICIN [Concomitant]
  9. VINCRISTINE [Concomitant]
  10. PREDNISOLONE [Concomitant]
  11. TREANDA [Concomitant]
     Dosage: TRIANDA
     Route: 065

REACTIONS (4)
  - Knee arthroplasty [Unknown]
  - Lymphoma [Unknown]
  - Neutropenia [Unknown]
  - White blood cell count decreased [Not Recovered/Not Resolved]
